FAERS Safety Report 4365901-1 (Version None)
Quarter: 2004Q2

REPORT INFORMATION
  Report Type: 
  Country: None (occurrence: None)
  Receive Date: 20040524
  Receipt Date: 20040518
  Transmission Date: 20050107
  Serious: Yes (Death)
  Sender: FDA-Public Use
  Company Number: 203315

PATIENT

DRUGS (1)
  1. ACTIVASE [Suspect]
     Indication: ARTERIAL OCCLUSIVE DISEASE
     Dosage: SEE IMAGE

REACTIONS (1)
  - BLOOD FIBRINOGEN DECREASED [None]
